FAERS Safety Report 15265107 (Version 1)
Quarter: 2018Q3

REPORT INFORMATION
  Report Type: Spontaneous
  Country: TW (occurrence: TW)
  Receive Date: 20180810
  Receipt Date: 20180810
  Transmission Date: 20181010
  Serious: Yes (Other)
  Sender: FDA-Public Use
  Company Number: TW-GILEAD-2018-0352716

PATIENT
  Age: 84 Year
  Sex: Female

DRUGS (1)
  1. SOVALDI [Suspect]
     Active Substance: SOFOSBUVIR
     Indication: HEPATITIS C
     Dosage: UNK
     Route: 065
     Dates: start: 20180529

REACTIONS (3)
  - Endotracheal intubation [Not Recovered/Not Resolved]
  - Hypoxia [Not Recovered/Not Resolved]
  - Methaemoglobinaemia [Unknown]

NARRATIVE: CASE EVENT DATE: 20180728
